FAERS Safety Report 18761977 (Version 2)
Quarter: 2021Q1

REPORT INFORMATION
  Report Type: Report from Study
  Country: CA (occurrence: CA)
  Receive Date: 20210120
  Receipt Date: 20210125
  Transmission Date: 20210419
  Serious: Yes (Hospitalization, Other)
  Sender: FDA-Public Use
  Company Number: CA-GLAXOSMITHKLINE-CA2021AMR008799

PATIENT
  Sex: Male

DRUGS (9)
  1. SPIRIVA RESPIMAT [Suspect]
     Active Substance: TIOTROPIUM BROMIDE
     Indication: PRODUCT USED FOR UNKNOWN INDICATION
     Dosage: UNK
  2. BREO ELLIPTA [Suspect]
     Active Substance: FLUTICASONE FUROATE\VILANTEROL TRIFENATATE
     Indication: ASTHMA
     Dosage: 1 PUFF(S), QD
  3. FLOMAX [Suspect]
     Active Substance: TAMSULOSIN HYDROCHLORIDE
     Indication: PRODUCT USED FOR UNKNOWN INDICATION
     Dosage: 0.4 MG
  4. MOMETASONE NASAL SPRAY [Suspect]
     Active Substance: MOMETASONE
     Indication: PRODUCT USED FOR UNKNOWN INDICATION
     Dosage: UNK
  5. SALBUTAMOL SULPHATE [Suspect]
     Active Substance: ALBUTEROL SULFATE
     Indication: ASTHMA
     Dosage: UNK, AS REQUIRED
  6. PREDNISONE. [Suspect]
     Active Substance: PREDNISONE
     Indication: ASTHMA
     Dosage: UNK
     Dates: start: 202009
  7. AMLODIPINE [Suspect]
     Active Substance: AMLODIPINE BESYLATE
     Indication: PRODUCT USED FOR UNKNOWN INDICATION
     Dosage: 10 MG
  8. ASPIRIN. [Suspect]
     Active Substance: ASPIRIN
     Indication: PRODUCT USED FOR UNKNOWN INDICATION
     Dosage: 81 MG
  9. PANTOLOC [Suspect]
     Active Substance: PANTOPRAZOLE SODIUM
     Indication: PRODUCT USED FOR UNKNOWN INDICATION
     Dosage: 40 MG, SCHEDULED FOR ONLY 2 WEEKS

REACTIONS (21)
  - Sleep disorder due to a general medical condition [Unknown]
  - Pleuritic pain [Unknown]
  - Lung opacity [Unknown]
  - Chest discomfort [Unknown]
  - Dyspnoea [Unknown]
  - Blood count abnormal [Unknown]
  - Pneumonia [Unknown]
  - Obstructive airways disorder [Unknown]
  - Hypopnoea [Unknown]
  - Seasonal allergy [Unknown]
  - Chronic obstructive pulmonary disease [Unknown]
  - Atelectasis [Unknown]
  - Loss of personal independence in daily activities [Unknown]
  - Asthma [Unknown]
  - Allergy to animal [Unknown]
  - Wheezing [Unknown]
  - Ventricular hypertrophy [Unknown]
  - Chest pain [Unknown]
  - Hypersensitivity [Unknown]
  - Dust allergy [Unknown]
  - Therapeutic product effect incomplete [Unknown]
